FAERS Safety Report 17465378 (Version 1)
Quarter: 2020Q1

REPORT INFORMATION
  Report Type: Report from Study
  Country: None (occurrence: US)
  Receive Date: 20200226
  Receipt Date: 20200226
  Transmission Date: 20200409
  Serious: Yes (Hospitalization, Other)
  Sender: FDA-Public Use
  Company Number: US-ABBVIE-20K-163-3291797-00

PATIENT
  Age: 61 Year
  Sex: Male

DRUGS (3)
  1. PREDNISONE. [Concomitant]
     Active Substance: PREDNISONE
     Indication: PRODUCT USED FOR UNKNOWN INDICATION
  2. HUMIRA [Suspect]
     Active Substance: ADALIMUMAB
     Dosage: DOSE INCREASED
     Route: 058
     Dates: start: 201912, end: 20200107
  3. HUMIRA [Suspect]
     Active Substance: ADALIMUMAB
     Indication: RHEUMATOID ARTHRITIS
     Route: 058
     Dates: start: 201910, end: 201912

REACTIONS (6)
  - Cardiac failure congestive [Unknown]
  - Back pain [Unknown]
  - Vitamin B12 deficiency [Unknown]
  - Hallucination [Unknown]
  - Asthenia [Unknown]
  - Disorientation [Unknown]

NARRATIVE: CASE EVENT DATE: 202001
